FAERS Safety Report 8293828-1 (Version None)
Quarter: 2012Q2

REPORT INFORMATION
  Report Type: 
  Country: None (occurrence: None)
  Receive Date: 20120418
  Receipt Date: 20120411
  Transmission Date: 20120825
  Serious: Yes (Hospitalization, Other)
  Sender: FDA-Public Use
  Company Number: US-AMGEN-USASP2012019227

PATIENT
  Age: 64 Year
  Sex: Male

DRUGS (4)
  1. EPOGEN [Suspect]
     Dosage: 10000 IU, ONE TIME DOSE
     Route: 042
     Dates: start: 20120404, end: 20120404
  2. EPOGEN [Suspect]
     Dosage: 7000 IU, 3 TIMES/WK
     Route: 058
     Dates: start: 20120202, end: 20120303
  3. EPOGEN [Suspect]
     Indication: NEPHROGENIC ANAEMIA
     Dosage: UNK
     Dates: start: 20110924, end: 20111213
  4. EPOGEN [Suspect]
     Dosage: 7000 IU, QWK
     Route: 058
     Dates: start: 20111214, end: 20120202

REACTIONS (5)
  - NORMOCHROMIC NORMOCYTIC ANAEMIA [None]
  - LYMPHOPENIA [None]
  - DRUG INEFFECTIVE [None]
  - EOSINOPHILIA [None]
  - OCCULT BLOOD POSITIVE [None]
